FAERS Safety Report 25483440 (Version 1)
Quarter: 2025Q2

REPORT INFORMATION
  Report Type: Spontaneous
  Country: GB (occurrence: GB)
  Receive Date: 20250626
  Receipt Date: 20250626
  Transmission Date: 20250716
  Serious: Yes (Life-Threatening, Hospitalization, Other)
  Sender: MYLAN
  Company Number: None

PATIENT
  Age: 84 Year
  Sex: Female
  Weight: 61 kg

DRUGS (52)
  1. DOXYCYCLINE [Suspect]
     Active Substance: DOXYCYCLINE
     Indication: Intervertebral discitis
     Dosage: 100 MILLIGRAM, BID (100MG TWICE A DAY)
     Dates: start: 20250405, end: 20250612
  2. DOXYCYCLINE [Suspect]
     Active Substance: DOXYCYCLINE
     Dosage: 100 MILLIGRAM, BID (100MG TWICE A DAY)
     Route: 065
     Dates: start: 20250405, end: 20250612
  3. DOXYCYCLINE [Suspect]
     Active Substance: DOXYCYCLINE
     Dosage: 100 MILLIGRAM, BID (100MG TWICE A DAY)
     Route: 065
     Dates: start: 20250405, end: 20250612
  4. DOXYCYCLINE [Suspect]
     Active Substance: DOXYCYCLINE
     Dosage: 100 MILLIGRAM, BID (100MG TWICE A DAY)
     Dates: start: 20250405, end: 20250612
  5. BISOPROLOL [Concomitant]
     Active Substance: BISOPROLOL
  6. BISOPROLOL [Concomitant]
     Active Substance: BISOPROLOL
     Route: 065
  7. BISOPROLOL [Concomitant]
     Active Substance: BISOPROLOL
     Route: 065
  8. BISOPROLOL [Concomitant]
     Active Substance: BISOPROLOL
  9. COTRIMOXAZOLE [Concomitant]
     Active Substance: SULFAMETHOXAZOLE\TRIMETHOPRIM
  10. COTRIMOXAZOLE [Concomitant]
     Active Substance: SULFAMETHOXAZOLE\TRIMETHOPRIM
     Route: 065
  11. COTRIMOXAZOLE [Concomitant]
     Active Substance: SULFAMETHOXAZOLE\TRIMETHOPRIM
     Route: 065
  12. COTRIMOXAZOLE [Concomitant]
     Active Substance: SULFAMETHOXAZOLE\TRIMETHOPRIM
  13. FOLIC ACID [Concomitant]
     Active Substance: FOLIC ACID
  14. FOLIC ACID [Concomitant]
     Active Substance: FOLIC ACID
     Route: 065
  15. FOLIC ACID [Concomitant]
     Active Substance: FOLIC ACID
     Route: 065
  16. FOLIC ACID [Concomitant]
     Active Substance: FOLIC ACID
  17. ATORVASTATIN [Concomitant]
     Active Substance: ATORVASTATIN
  18. ATORVASTATIN [Concomitant]
     Active Substance: ATORVASTATIN
     Route: 065
  19. ATORVASTATIN [Concomitant]
     Active Substance: ATORVASTATIN
     Route: 065
  20. ATORVASTATIN [Concomitant]
     Active Substance: ATORVASTATIN
  21. DOCUSATE [Concomitant]
     Active Substance: DOCUSATE
  22. DOCUSATE [Concomitant]
     Active Substance: DOCUSATE
     Route: 065
  23. DOCUSATE [Concomitant]
     Active Substance: DOCUSATE
     Route: 065
  24. DOCUSATE [Concomitant]
     Active Substance: DOCUSATE
  25. ESTRADIOL [Concomitant]
     Active Substance: ESTRADIOL
  26. ESTRADIOL [Concomitant]
     Active Substance: ESTRADIOL
     Route: 065
  27. ESTRADIOL [Concomitant]
     Active Substance: ESTRADIOL
     Route: 065
  28. ESTRADIOL [Concomitant]
     Active Substance: ESTRADIOL
  29. FLUOXETINE [Concomitant]
     Active Substance: FLUOXETINE HYDROCHLORIDE
  30. FLUOXETINE [Concomitant]
     Active Substance: FLUOXETINE HYDROCHLORIDE
     Route: 065
  31. FLUOXETINE [Concomitant]
     Active Substance: FLUOXETINE HYDROCHLORIDE
     Route: 065
  32. FLUOXETINE [Concomitant]
     Active Substance: FLUOXETINE HYDROCHLORIDE
  33. LANSOPRAZOLE [Concomitant]
     Active Substance: LANSOPRAZOLE
  34. LANSOPRAZOLE [Concomitant]
     Active Substance: LANSOPRAZOLE
     Route: 065
  35. LANSOPRAZOLE [Concomitant]
     Active Substance: LANSOPRAZOLE
     Route: 065
  36. LANSOPRAZOLE [Concomitant]
     Active Substance: LANSOPRAZOLE
  37. OXYCODONE [Concomitant]
     Active Substance: OXYCODONE
  38. OXYCODONE [Concomitant]
     Active Substance: OXYCODONE
     Route: 065
  39. OXYCODONE [Concomitant]
     Active Substance: OXYCODONE
     Route: 065
  40. OXYCODONE [Concomitant]
     Active Substance: OXYCODONE
  41. POLYETHYLENE GLYCOLS [Concomitant]
     Active Substance: POLYETHYLENE GLYCOLS
  42. POLYETHYLENE GLYCOLS [Concomitant]
     Active Substance: POLYETHYLENE GLYCOLS
     Route: 065
  43. POLYETHYLENE GLYCOLS [Concomitant]
     Active Substance: POLYETHYLENE GLYCOLS
     Route: 065
  44. POLYETHYLENE GLYCOLS [Concomitant]
     Active Substance: POLYETHYLENE GLYCOLS
  45. ACETAMINOPHEN [Concomitant]
     Active Substance: ACETAMINOPHEN
  46. ACETAMINOPHEN [Concomitant]
     Active Substance: ACETAMINOPHEN
     Route: 065
  47. ACETAMINOPHEN [Concomitant]
     Active Substance: ACETAMINOPHEN
     Route: 065
  48. ACETAMINOPHEN [Concomitant]
     Active Substance: ACETAMINOPHEN
  49. SENNA [Concomitant]
     Active Substance: SENNOSIDES
  50. SENNA [Concomitant]
     Active Substance: SENNOSIDES
     Route: 065
  51. SENNA [Concomitant]
     Active Substance: SENNOSIDES
     Route: 065
  52. SENNA [Concomitant]
     Active Substance: SENNOSIDES

REACTIONS (2)
  - Haematemesis [Recovering/Resolving]
  - Medication error [Unknown]

NARRATIVE: CASE EVENT DATE: 20250101
